FAERS Safety Report 21093056 (Version 1)
Quarter: 2022Q3

REPORT INFORMATION
  Report Type: Report from Study
  Country: US (occurrence: US)
  Receive Date: 20220718
  Receipt Date: 20220718
  Transmission Date: 20221026
  Serious: Yes (Hospitalization)
  Sender: FDA-Public Use
  Company Number: US-AMGEN-USASL2022120653

PATIENT
  Sex: Female

DRUGS (3)
  1. OTEZLA [Suspect]
     Active Substance: APREMILAST
     Indication: Mouth ulceration
     Dosage: 30 MILLIGRAM, BID
     Route: 065
     Dates: start: 202206, end: 202206
  2. OTEZLA [Suspect]
     Active Substance: APREMILAST
     Indication: Psoriasis
  3. OTEZLA [Suspect]
     Active Substance: APREMILAST
     Indication: Psoriatic arthropathy

REACTIONS (3)
  - Hypersensitivity [Unknown]
  - Hepatic enzyme increased [Unknown]
  - Headache [Unknown]

NARRATIVE: CASE EVENT DATE: 20220601
